FAERS Safety Report 7746791-3 (Version None)
Quarter: 2011Q3

REPORT INFORMATION
  Report Type: 
  Country: None (occurrence: None)
  Receive Date: 20110913
  Receipt Date: 20110901
  Transmission Date: 20111222
  Serious: Yes (Death)
  Sender: FDA-Public Use
  Company Number: GB-NOVOPROD-334428

PATIENT

DRUGS (2)
  1. NOVORAPID FLEXPEN [Suspect]
     Indication: TYPE 1 DIABETES MELLITUS
     Dosage: 6-8 UNITS AT MEALTIME
  2. LANTUS [Concomitant]
     Indication: TYPE 1 DIABETES MELLITUS
     Dosage: UNK

REACTIONS (5)
  - ERECTILE DYSFUNCTION [None]
  - DEATH [None]
  - DIABETIC COMA [None]
  - SOMNOLENCE [None]
  - ALCOHOL USE [None]
